FAERS Safety Report 4597512-7 (Version None)
Quarter: 2005Q1

REPORT INFORMATION
  Report Type: 
  Country: None (occurrence: None)
  Receive Date: 20050303
  Receipt Date: 20050223
  Transmission Date: 20050727
  Serious: Yes (Other)
  Sender: FDA-Public Use
  Company Number: PHBS2005BE02991

PATIENT
  Age: 61 Year
  Sex: Male

DRUGS (13)
  1. FOLIC ACID [Concomitant]
     Route: 065
  2. ARANESP [Concomitant]
     Route: 065
  3. STILNOCT [Concomitant]
     Route: 065
  4. DURAGESIC-100 [Concomitant]
     Route: 065
  5. MORPHINE [Concomitant]
     Route: 065
  6. DORLAX [Concomitant]
     Route: 065
  7. TEGRETOL [Concomitant]
     Route: 065
  8. AMLOR [Concomitant]
     Route: 065
  9. RABEPRAZOLE SODIUM [Concomitant]
     Route: 065
  10. DAFALGAN [Concomitant]
     Route: 065
  11. MARCOUMAR [Concomitant]
     Route: 065
  12. ZOMETA [Suspect]
     Indication: MULTIPLE MYELOMA
     Dosage: UNK, UNK
     Route: 042
     Dates: start: 20020901, end: 20041101
  13. RADIOTHERAPY [Concomitant]
     Dates: start: 20041001

REACTIONS (6)
  - CANDIDIASIS [None]
  - LOCAL SWELLING [None]
  - STAPHYLOCOCCAL INFECTION [None]
  - STREPTOCOCCAL INFECTION [None]
  - WOUND DEBRIDEMENT [None]
  - WOUND DRAINAGE [None]
